FAERS Safety Report 5766733-X (Version None)
Quarter: 2008Q2

REPORT INFORMATION
  Report Type: 
  Country: None (occurrence: None)
  Receive Date: 20080609
  Receipt Date: 20080528
  Transmission Date: 20081010
  Serious: Yes (Death, Other)
  Sender: FDA-Public Use
  Company Number: 163-21880-08020038

PATIENT
  Age: 51 Year
  Sex: Female

DRUGS (14)
  1. REVLIMID (LENALIDOMIDE) (5 MILLIGRAM, CAPSULES) [Suspect]
     Indication: MYELODYSPLASTIC SYNDROME
     Dosage: 10 MG, DAILY FOR 21 DAYS, ORAL; 20 MG, DAILY FOR 21 DAYS, ORAL
     Route: 048
     Dates: start: 20070510, end: 20070601
  2. REVLIMID (LENALIDOMIDE) (5 MILLIGRAM, CAPSULES) [Suspect]
     Indication: MYELODYSPLASTIC SYNDROME
     Dosage: 10 MG, DAILY FOR 21 DAYS, ORAL; 20 MG, DAILY FOR 21 DAYS, ORAL
     Route: 048
     Dates: start: 20080101, end: 20080107
  3. CIPRO [Concomitant]
  4. AMBISOME [Concomitant]
  5. GANCICLOVIR [Concomitant]
  6. INVANZ (ERTAPENEM SODIUM) [Concomitant]
  7. ZYVOX [Concomitant]
  8. NEXIUM [Concomitant]
  9. ATIVAN [Concomitant]
  10. ALLOPURINOL [Concomitant]
  11. ALBUTEROL [Concomitant]
  12. URSO 250 [Concomitant]
  13. TPN (TPN) [Concomitant]
  14. SSI (SLIDING SCALE INSULIN) (INSULIN) [Concomitant]

REACTIONS (18)
  - ACIDOSIS [None]
  - ACUTE MYELOID LEUKAEMIA [None]
  - BACTERIAL INFECTION [None]
  - BLOOD CULTURE POSITIVE [None]
  - CHEST X-RAY ABNORMAL [None]
  - DISEASE PROGRESSION [None]
  - EFFUSION [None]
  - HYPOTENSION [None]
  - HYPOTHERMIA [None]
  - ILEUS [None]
  - INFECTION [None]
  - INTESTINAL OBSTRUCTION [None]
  - LOBAR PNEUMONIA [None]
  - MYELODYSPLASTIC SYNDROME [None]
  - PNEUMONIA ASPIRATION [None]
  - PYREXIA [None]
  - RESPIRATORY FAILURE [None]
  - SEPSIS [None]
